FAERS Safety Report 24042491 (Version 1)
Quarter: 2024Q3

REPORT INFORMATION
  Report Type: Spontaneous
  Country: US (occurrence: US)
  Receive Date: 20240702
  Receipt Date: 20240702
  Transmission Date: 20241016
  Serious: No
  Sender: INTRA-CELLULAR THERAPIES
  Company Number: US-INTRA-CELLULAR THERAPIES, INC.-2022ICT01425

PATIENT
  Age: 21 Year
  Sex: Male
  Weight: 77.098 kg

DRUGS (1)
  1. CAPLYTA [Suspect]
     Active Substance: LUMATEPERONE
     Indication: Schizophrenia
     Dosage: 42 MG, 1X/DAY
     Route: 048
     Dates: start: 20220711, end: 20220725

REACTIONS (6)
  - Genital hypoaesthesia [Recovered/Resolved]
  - Increased appetite [Recovered/Resolved]
  - Insomnia [Recovered/Resolved]
  - Apathy [Recovered/Resolved]
  - Depression [Recovered/Resolved]
  - Blepharospasm [Recovered/Resolved]

NARRATIVE: CASE EVENT DATE: 20220701
